FAERS Safety Report 5642307-6 (Version None)
Quarter: 2008Q1

REPORT INFORMATION
  Report Type: 
  Country: None (occurrence: None)
  Receive Date: 20080227
  Receipt Date: 20080219
  Transmission Date: 20080703
  Serious: Yes (Death)
  Sender: FDA-Public Use
  Company Number: US-GENENTECH-256205

PATIENT
  Sex: Male
  Weight: 2.255 kg

DRUGS (10)
  1. RITUXIMAB [Suspect]
     Indication: SYSTEMIC LUPUS ERYTHEMATOSUS
     Dosage: UNK, UNK
     Route: 064
  2. TYLENOL EXTRA STRENGTH [Concomitant]
     Indication: HEADACHE
     Route: 064
     Dates: start: 20060616, end: 20070613
  3. CELLCEPT [Concomitant]
     Indication: SYSTEMIC LUPUS ERYTHEMATOSUS
     Dosage: UNK, UNK
     Route: 064
     Dates: end: 20070613
  4. FOLIC ACID [Concomitant]
     Indication: VITAMIN SUPPLEMENTATION
     Route: 064
     Dates: start: 20070916
  5. COUMADIN [Concomitant]
     Indication: ANTIPHOSPHOLIPID SYNDROME
     Route: 064
     Dates: end: 20070613
  6. HEPARIN [Concomitant]
     Indication: ANTICOAGULANT THERAPY
     Route: 064
     Dates: start: 20070612, end: 20070612
  7. LORTAB [Concomitant]
     Indication: PAIN
     Route: 064
     Dates: start: 20070611, end: 20070612
  8. LOVENOX [Concomitant]
     Indication: THROMBOSIS PROPHYLAXIS
     Route: 064
     Dates: start: 20070612, end: 20070613
  9. ZOFRAN [Concomitant]
     Indication: NAUSEA
     Route: 064
     Dates: start: 20070611, end: 20070613
  10. LISINOPRIL [Concomitant]
     Indication: DRUG USE FOR UNKNOWN INDICATION
     Route: 064

REACTIONS (1)
  - DEATH [None]
